FAERS Safety Report 26051532 (Version 1)
Quarter: 2025Q4

REPORT INFORMATION
  Report Type: Spontaneous
  Country: US (occurrence: US)
  Receive Date: 20251117
  Receipt Date: 20251117
  Transmission Date: 20260118
  Serious: No
  Sender: TEVA
  Company Number: US-TEVA-VS-3391664

PATIENT

DRUGS (1)
  1. BUPRENORPHINE [Suspect]
     Active Substance: BUPRENORPHINE
     Indication: Product used for unknown indication
     Route: 065

REACTIONS (7)
  - Oral discomfort [Unknown]
  - Illness [Unknown]
  - Migraine [Unknown]
  - Hypersensitivity [Unknown]
  - Head discomfort [Unknown]
  - Product taste abnormal [Unknown]
  - Feeling abnormal [Unknown]
